FAERS Safety Report 20529494 (Version 13)
Quarter: 2024Q1

REPORT INFORMATION
  Report Type: Spontaneous
  Country: CA (occurrence: CA)
  Receive Date: 20220228
  Receipt Date: 20240215
  Transmission Date: 20240410
  Serious: Yes (Other)
  Sender: FDA-Public Use
  Company Number: CA-CELLTRION INC.-2021CA016013

PATIENT

DRUGS (21)
  1. INFLIXIMAB [Suspect]
     Active Substance: INFLIXIMAB
     Indication: Rheumatoid arthritis
     Dosage: 120 MG/ML Q2WEEKS SUBCUTANEOUSLY
     Route: 058
     Dates: start: 20211118
  2. INFLIXIMAB [Suspect]
     Active Substance: INFLIXIMAB
     Dosage: 120 MG/ML Q2WEEKS SUBCUTANEOUSLY (2ND DOSE)
     Route: 058
     Dates: start: 20211201
  3. INFLIXIMAB [Suspect]
     Active Substance: INFLIXIMAB
     Dosage: 120 MG/ML Q2WEEKS
     Route: 058
     Dates: start: 20211217
  4. INFLIXIMAB [Suspect]
     Active Substance: INFLIXIMAB
     Dosage: UNK
     Route: 058
     Dates: start: 20220211
  5. INFLIXIMAB [Suspect]
     Active Substance: INFLIXIMAB
     Dosage: 120 MILLIGRAM, Q2WEEKS
     Route: 058
     Dates: start: 20230113
  6. INFLIXIMAB [Suspect]
     Active Substance: INFLIXIMAB
     Dosage: UNK
  7. BUPROPION HYDROCHLORIDE XL [Concomitant]
     Active Substance: BUPROPION HYDROCHLORIDE
  8. CETIRIZINE [Concomitant]
     Active Substance: CETIRIZINE HYDROCHLORIDE
  9. FERROUS FUMARATE [Concomitant]
     Active Substance: FERROUS FUMARATE
  10. FOLIC ACID [Concomitant]
     Active Substance: FOLIC ACID
  11. NIFEDIPINE [Concomitant]
     Active Substance: NIFEDIPINE
  12. RANITIDINE [Concomitant]
     Active Substance: RANITIDINE
  13. ROSUVASTATIN [Concomitant]
     Active Substance: ROSUVASTATIN
  14. SUCRALFATE [Concomitant]
     Active Substance: SUCRALFATE
  15. TELMISARTAN [Concomitant]
     Active Substance: TELMISARTAN
  16. HYDROXOCOBALAMIN [Concomitant]
     Active Substance: HYDROXOCOBALAMIN
  17. CHOLECALCIFEROL [Concomitant]
     Active Substance: CHOLECALCIFEROL
  18. OZEMPIC [Concomitant]
     Active Substance: SEMAGLUTIDE
  19. METHOTREXATE [Concomitant]
     Active Substance: METHOTREXATE
     Dosage: UNK
     Dates: start: 2020
  20. TRANEXAMIC ACID [Concomitant]
     Active Substance: TRANEXAMIC ACID
  21. ASMANEX [Concomitant]
     Active Substance: MOMETASONE FUROATE

REACTIONS (27)
  - Rheumatoid arthritis [Recovering/Resolving]
  - Rheumatoid arthritis [Not Recovered/Not Resolved]
  - COVID-19 [Recovered/Resolved]
  - Peritonsillar abscess [Unknown]
  - Abdominal discomfort [Not Recovered/Not Resolved]
  - Full blood count increased [Unknown]
  - Condition aggravated [Unknown]
  - Generalised oedema [Unknown]
  - Sensitivity to weather change [Not Recovered/Not Resolved]
  - Tonsillar erythema [Unknown]
  - Tonsillar hypertrophy [Unknown]
  - White blood cell count increased [Unknown]
  - Onychoclasis [Unknown]
  - Spinal deformity [Not Recovered/Not Resolved]
  - Drug specific antibody absent [Unknown]
  - Gait disturbance [Not Recovered/Not Resolved]
  - Joint swelling [Not Recovered/Not Resolved]
  - Oropharyngeal pain [Recovered/Resolved]
  - Pain [Not Recovered/Not Resolved]
  - Abdominal pain upper [Unknown]
  - Psoriasis [Recovering/Resolving]
  - Back pain [Not Recovered/Not Resolved]
  - Arthralgia [Not Recovered/Not Resolved]
  - Intentional product use issue [Recovered/Resolved]
  - Product distribution issue [Unknown]
  - Therapy interrupted [Unknown]
  - Drug ineffective [Unknown]

NARRATIVE: CASE EVENT DATE: 20211118
